FAERS Safety Report 8608081-6 (Version None)
Quarter: 2012Q3

REPORT INFORMATION
  Report Type: 
  Country: None (occurrence: None)
  Receive Date: 20120821
  Receipt Date: 20120816
  Transmission Date: 20120928
  Serious: Yes (Death, Other)
  Sender: FDA-Public Use
  Company Number: PHEH2011US08352

PATIENT
  Age: 71 Year
  Sex: Female
  Weight: 98.866 kg

DRUGS (5)
  1. NEXIUM [Concomitant]
  2. TOBI [Suspect]
     Indication: SJOGREN'S SYNDROME
     Dosage: 300 MG, BID, 28 DAYS ON AND 28 DAYS OFF
     Dates: start: 20110106
  3. ALBUTEROL [Concomitant]
  4. TOBI [Suspect]
     Dosage: 300 MG, BID
     Dates: start: 20120202
  5. PULMICORT [Concomitant]

REACTIONS (3)
  - ORGAN FAILURE [None]
  - PSEUDOMONAS INFECTION [None]
  - SJOGREN'S SYNDROME [None]
